FAERS Safety Report 9473939 (Version 1)
Quarter: 2013Q3

REPORT INFORMATION
  Report Type: Spontaneous
  Country: US (occurrence: US)
  Receive Date: 20130823
  Receipt Date: 20130823
  Transmission Date: 20140515
  Serious: No
  Sender: FDA-Public Use
  Company Number: US-BRISTOL-MYERS SQUIBB COMPANY-17168881

PATIENT
  Age: 39 Year
  Sex: Female
  Weight: 160.54 kg

DRUGS (4)
  1. SPRYCEL [Suspect]
     Indication: CHRONIC MYELOID LEUKAEMIA
     Dates: start: 20121017
  2. SUDAFED [Concomitant]
  3. TYLENOL [Concomitant]
  4. VITAMIN D [Concomitant]

REACTIONS (3)
  - Palpitations [Unknown]
  - Dyspnoea [Unknown]
  - Anaemia [Unknown]
